FAERS Safety Report 5598177-8 (Version None)
Quarter: 2008Q1

REPORT INFORMATION
  Report Type: 
  Country: None (occurrence: None)
  Receive Date: 20080122
  Receipt Date: 20080115
  Transmission Date: 20080703
  Serious: Yes (Hospitalization, Other)
  Sender: FDA-Public Use
  Company Number: PHEH2006US10968

PATIENT
  Age: 74 Year
  Sex: Male
  Weight: 75.736 kg

DRUGS (17)
  1. AREDIA [Suspect]
     Indication: SPINAL FRACTURE
     Dosage: UNK, QMO
     Route: 042
     Dates: start: 19990101, end: 20030101
  2. ZOMETA [Suspect]
     Indication: SPINAL FRACTURE
     Dosage: 4 MG IV Q 4 WEEKS
     Route: 042
     Dates: start: 20030131, end: 20050815
  3. NITROGLYCERIN [Concomitant]
  4. NITROGLYCERIN ^DAVID BULL^ [Concomitant]
     Dosage: UNK, PRN
     Route: 060
  5. KLONOPIN [Concomitant]
     Dosage: 0.5 MG, 2 TAB IN AM, 3 TAB QHS
     Route: 048
  6. NEURONTIN [Concomitant]
     Indication: NEUROPATHY PERIPHERAL
     Dosage: 300 MG, TID
     Route: 048
     Dates: start: 20030101
  7. CELEBREX [Concomitant]
     Indication: ARTHRITIS
  8. ZOCOR [Concomitant]
     Indication: LIPIDS INCREASED
     Dosage: 20 MG, QD
     Route: 048
  9. PAXIL [Concomitant]
     Dosage: 20 MG, QD
     Route: 048
  10. LESCOL [Concomitant]
     Dosage: 40 MG, QD
     Route: 048
  11. PREVACID [Concomitant]
     Dosage: 30 MG, QHS
     Route: 048
  12. TEMAZEPAM [Concomitant]
     Dosage: 30 MG, QHS
     Route: 048
  13. VICODIN [Concomitant]
     Dosage: UNK, PRN
  14. SOMA [Concomitant]
     Dosage: UNK, PRN
  15. ALKERAN [Concomitant]
     Dosage: 2 TABLETS, TID
     Route: 048
  16. PREDNISONE [Concomitant]
     Dosage: 20 MG, TID
  17. PRAVACHOL [Concomitant]

REACTIONS (34)
  - ANHEDONIA [None]
  - ANXIETY [None]
  - ARTHRALGIA [None]
  - BLOOD IMMUNOGLOBULIN A INCREASED [None]
  - BONE DISORDER [None]
  - BURNING SENSATION [None]
  - DEEP VEIN THROMBOSIS [None]
  - ERYTHEMA [None]
  - GINGIVAL BLEEDING [None]
  - HAEMORRHOIDS [None]
  - HERPES ZOSTER [None]
  - IMPAIRED HEALING [None]
  - INJURY [None]
  - INTERVERTEBRAL DISC DEGENERATION [None]
  - IRON DEFICIENCY ANAEMIA [None]
  - JAW DISORDER [None]
  - JAW OPERATION [None]
  - LUMBAR SPINAL STENOSIS [None]
  - MUCOSAL INFLAMMATION [None]
  - MULTIPLE MYELOMA [None]
  - NEUROPATHY PERIPHERAL [None]
  - ORAL PAIN [None]
  - OSTEONECROSIS [None]
  - OSTEOPENIA [None]
  - PAIN [None]
  - PAIN IN EXTREMITY [None]
  - PAIN IN JAW [None]
  - PNEUMONIA [None]
  - SECONDARY IMMUNODEFICIENCY [None]
  - SKELETAL SURVEY ABNORMAL [None]
  - SPINAL FRACTURE [None]
  - TOOTH DISORDER [None]
  - TOOTH EXTRACTION [None]
  - VERTEBROPLASTY [None]
